FAERS Safety Report 5216315-3 (Version None)
Quarter: 2007Q1

REPORT INFORMATION
  Report Type: 
  Country: None (occurrence: None)
  Receive Date: 20070118
  Receipt Date: 20070104
  Transmission Date: 20070707
  Serious: Yes (Other)
  Sender: FDA-Public Use
  Company Number: 2006US-02971

PATIENT
  Age: 20 Year
  Sex: Female

DRUGS (2)
  1. ISOTRETINOIN [Suspect]
     Indication: ACNE
     Dosage: 40 MG, BID
     Dates: start: 20060315, end: 20060425
  2. BIRTH CONTROL PILLS [Concomitant]

REACTIONS (3)
  - BRONCHOSPASM [None]
  - COUGH [None]
  - SINUSITIS [None]
